FAERS Safety Report 18370693 (Version 1)
Quarter: 2020Q4

REPORT INFORMATION
  Report Type: Spontaneous
  Country: DE (occurrence: DE)
  Receive Date: 20201012
  Receipt Date: 20201012
  Transmission Date: 20210114
  Serious: Yes (Hospitalization)
  Sender: FDA-Public Use
  Company Number: DE-MYLANLABS-2020M1085440

PATIENT
  Age: 17 Year
  Sex: Female
  Weight: 49 kg

DRUGS (1)
  1. PARACETAMOL [Suspect]
     Active Substance: ACETAMINOPHEN
     Indication: PRODUCT USED FOR UNKNOWN INDICATION
     Dosage: DAILY DOSE: 10000 MG MILLGRAM(S) EVERY DAYS 20 SEPARATED DOSES
     Route: 048
     Dates: start: 20190529, end: 20190529

REACTIONS (3)
  - Intentional overdose [Unknown]
  - Toxicity to various agents [Unknown]
  - Suicidal ideation [Unknown]

NARRATIVE: CASE EVENT DATE: 20190529
